FAERS Safety Report 5023239-3 (Version None)
Quarter: 2006Q2

REPORT INFORMATION
  Report Type: 
  Country: None (occurrence: None)
  Receive Date: 20060428
  Receipt Date: 20060224
  Transmission Date: 20061013
  Serious: No
  Sender: FDA-Public Use
  Company Number: 012082

PATIENT
  Age: 49 Year
  Sex: Male

DRUGS (5)
  1. PRIALT [Suspect]
     Indication: BACK PAIN
     Dosage: SEE IMAGE
     Route: 037
     Dates: start: 20051001, end: 20060101
  2. PRIALT [Suspect]
     Indication: BACK PAIN
     Dosage: SEE IMAGE
     Route: 037
     Dates: start: 20060101
  3. CLONIDINE [Concomitant]
  4. DILAUDID [Concomitant]
  5. OXYCONTIN [Concomitant]

REACTIONS (5)
  - ANXIETY [None]
  - DISTURBANCE IN ATTENTION [None]
  - EUPHORIC MOOD [None]
  - HALLUCINATION, VISUAL [None]
  - TINNITUS [None]
